FAERS Safety Report 4785820-6 (Version None)
Quarter: 2005Q3

REPORT INFORMATION
  Report Type: 
  Country: None (occurrence: None)
  Receive Date: 20050920
  Receipt Date: 20050815
  Transmission Date: 20060218
  Serious: No
  Sender: FDA-Public Use
  Company Number: 200510429BVD

PATIENT
  Age: 13 Year

DRUGS (2)
  1. GAMUNEX [Suspect]
     Indication: IDIOPATHIC THROMBOCYTOPENIC PURPURA
     Dosage: INTRAVENOUS
     Route: 042
     Dates: start: 20050301
  2. GAMIMUNE N 5% [Concomitant]

REACTIONS (3)
  - NAUSEA [None]
  - PYREXIA [None]
  - THERAPY NON-RESPONDER [None]
